FAERS Safety Report 15883849 (Version 1)
Quarter: 2019Q1

REPORT INFORMATION
  Report Type: Spontaneous
  Country: US (occurrence: US)
  Receive Date: 20190129
  Receipt Date: 20190129
  Transmission Date: 20190417
  Serious: No
  Sender: FDA-Public Use
  Company Number: US-SUNOVION-2019SUN000208

PATIENT
  Age: 32 Year
  Sex: Male
  Weight: 122.45 kg

DRUGS (3)
  1. TOPIRAMATE. [Concomitant]
     Active Substance: TOPIRAMATE
     Indication: NIGHTMARE
     Dosage: 200 MG, HS
     Route: 048
  2. IMIPRAMINE HCL [Concomitant]
     Active Substance: IMIPRAMINE HYDROCHLORIDE
     Indication: DEPRESSION
     Dosage: 50 MG, TID
     Route: 048
  3. LATUDA [Suspect]
     Active Substance: LURASIDONE HYDROCHLORIDE
     Indication: BIPOLAR DISORDER
     Dosage: 80 MG, QD
     Route: 048

REACTIONS (2)
  - Mania [Unknown]
  - Product dose omission [Unknown]

NARRATIVE: CASE EVENT DATE: 201812
